FAERS Safety Report 13219388 (Version 2)
Quarter: 2017Q1

REPORT INFORMATION
  Report Type: Spontaneous
  Country: JP (occurrence: JP)
  Receive Date: 20170210
  Receipt Date: 20170328
  Transmission Date: 20170428
  Serious: Yes (Other)
  Sender: FDA-Public Use
  Company Number: JP-ROCHE-1890125

PATIENT
  Age: 83 Year
  Sex: Male

DRUGS (1)
  1. TAMIFLU [Suspect]
     Active Substance: OSELTAMIVIR PHOSPHATE
     Indication: INFLUENZA
     Dosage: SINGLE DOSE ADMINISTRATION?DOSAGE IS UNCERTAIN.
     Route: 048

REACTIONS (6)
  - Vomiting [Unknown]
  - Septic shock [Unknown]
  - Hypoxic-ischaemic encephalopathy [Unknown]
  - Restlessness [Unknown]
  - Abnormal behaviour [Unknown]
  - Seizure [Unknown]
